FAERS Safety Report 9363506 (Version 1)
Quarter: 2013Q2

REPORT INFORMATION
  Report Type: Spontaneous
  Country: GB (occurrence: GB)
  Receive Date: 20130624
  Receipt Date: 20130624
  Transmission Date: 20140414
  Serious: Yes (Other)
  Sender: FDA-Public Use
  Company Number: GB-MYLANLABS-2013S1012730

PATIENT
  Age: 26 Year
  Sex: 0

DRUGS (30)
  1. DICLOFENAC [Suspect]
     Indication: RHEUMATOID ARTHRITIS
  2. DICLOFENAC [Suspect]
     Indication: PAIN
  3. DICLOFENAC [Suspect]
     Indication: HYPERMOBILITY SYNDROME
  4. DICLOFENAC [Suspect]
     Indication: OSTEOARTHRITIS
  5. DICLOFENAC [Suspect]
     Indication: OSTEOPOROSIS
  6. DICLOFENAC [Suspect]
     Indication: MYALGIA
  7. NAPROXEN [Suspect]
     Indication: PAIN
  8. NAPROXEN [Suspect]
     Indication: HYPERMOBILITY SYNDROME
  9. NAPROXEN [Suspect]
     Indication: OSTEOARTHRITIS
  10. NAPROXEN [Suspect]
     Indication: OSTEOPOROSIS
  11. NAPROXEN [Suspect]
     Indication: MYALGIA
  12. NAPROXEN [Suspect]
     Indication: RHEUMATOID ARTHRITIS
  13. CO-CODAMOL [Suspect]
     Indication: PAIN
  14. CO-CODAMOL [Suspect]
     Indication: HYPERMOBILITY SYNDROME
  15. CO-CODAMOL [Suspect]
     Indication: OSTEOARTHRITIS
  16. CO-CODAMOL [Suspect]
     Indication: OSTEOPOROSIS
  17. CO-CODAMOL [Suspect]
     Indication: MYALGIA
  18. CO-CODAMOL [Suspect]
     Indication: RHEUMATOID ARTHRITIS
  19. LEFLUNOMIDE [Suspect]
     Indication: PAIN
  20. LEFLUNOMIDE [Suspect]
     Indication: HYPERMOBILITY SYNDROME
  21. LEFLUNOMIDE [Suspect]
     Indication: OSTEOARTHRITIS
  22. LEFLUNOMIDE [Suspect]
     Indication: OSTEOPOROSIS
  23. LEFLUNOMIDE [Suspect]
     Indication: MYALGIA
  24. LEFLUNOMIDE [Suspect]
     Indication: RHEUMATOID ARTHRITIS
  25. TRAMADOL [Suspect]
     Indication: PAIN
  26. TRAMADOL [Suspect]
     Indication: HYPERMOBILITY SYNDROME
  27. TRAMADOL [Suspect]
     Indication: OSTEOARTHRITIS
  28. TRAMADOL [Suspect]
     Indication: OSTEOPOROSIS
  29. TRAMADOL [Suspect]
     Indication: MYALGIA
  30. TRAMADOL [Suspect]
     Indication: RHEUMATOID ARTHRITIS

REACTIONS (2)
  - Suicidal ideation [Unknown]
  - Drug ineffective [Unknown]
